FAERS Safety Report 8285271-6 (Version None)
Quarter: 2012Q2

REPORT INFORMATION
  Report Type: 
  Country: None (occurrence: None)
  Receive Date: 20120413
  Receipt Date: 20120410
  Transmission Date: 20120825
  Serious: Yes (Other)
  Sender: FDA-Public Use
  Company Number: PHHY2012IN030653

PATIENT
  Age: 9 Year
  Sex: Male
  Weight: 23 kg

DRUGS (7)
  1. THIOPENTAL SODIUM [Suspect]
     Indication: INDUCTION OF ANAESTHESIA
     Dosage: 5 MG/KG, UNK
  2. OXYGEN [Concomitant]
     Indication: MAINTENANCE OF ANAESTHESIA
  3. MORPHINE [Concomitant]
     Indication: ANALGESIC THERAPY
     Dosage: 1 MG, UNK
  4. ISOFLURANE [Concomitant]
     Indication: MAINTENANCE OF ANAESTHESIA
  5. SUCCINYLCHOLINE CHLORIDE [Suspect]
     Indication: INDUCTION OF ANAESTHESIA
     Dosage: 1 MG/KG, UNK
  6. FENTANYL [Concomitant]
     Indication: ANALGESIC THERAPY
     Dosage: 50 UG, UNK
  7. ACETAMINOPHEN [Concomitant]
     Indication: ANALGESIC THERAPY
     Dosage: 400 MG, UNK

REACTIONS (2)
  - APNOEA [None]
  - BLOOD CHOLINESTERASE DECREASED [None]
